FAERS Safety Report 17752852 (Version 5)
Quarter: 2020Q2

REPORT INFORMATION
  Report Type: Report from Study
  Country: US (occurrence: US)
  Receive Date: 20200506
  Receipt Date: 20200609
  Transmission Date: 20200714
  Serious: Yes (Other)
  Sender: FDA-Public Use
  Company Number: NVSC2020US122700

PATIENT
  Age: 74 Year
  Sex: Female

DRUGS (3)
  1. PIQRAY [Suspect]
     Active Substance: ALPELISIB
     Dosage: 150 MG, UNKNOWN
     Route: 048
  2. PIQRAY [Suspect]
     Active Substance: ALPELISIB
     Indication: BREAST CANCER FEMALE
     Dosage: 300 MG
     Route: 048
  3. PIQRAY [Suspect]
     Active Substance: ALPELISIB
     Indication: BONE CANCER
     Dosage: 200 MG, QD
     Route: 048
     Dates: start: 20200428

REACTIONS (6)
  - Decreased appetite [Unknown]
  - Inappropriate schedule of product administration [Unknown]
  - White blood cell count decreased [Recovering/Resolving]
  - Stomatitis [Recovering/Resolving]
  - Neutropenia [Unknown]
  - Taste disorder [Unknown]

NARRATIVE: CASE EVENT DATE: 20200506
